FAERS Safety Report 9828545 (Version 2)
Quarter: 2014Q1

REPORT INFORMATION
  Report Type: Not Available
  Country: FR (occurrence: FR)
  Receive Date: 20140117
  Receipt Date: 20140320
  Transmission Date: 20141002
  Serious: Yes (Hospitalization)
  Sender: FDA-Public Use
  Company Number: FR-NAPPMUNDI-GBR-2014-0016861

PATIENT
  Age: 88 Year
  Sex: Male

DRUGS (9)
  1. OXYNORM 5 MG, GELULE [Suspect]
     Indication: PAIN
     Dosage: 5 MG, PRN
     Route: 048
     Dates: start: 20131208, end: 20131210
  2. MORPHINE [Suspect]
     Indication: PAIN
     Dosage: 1 MG, SINGLE
     Route: 058
     Dates: start: 20131212, end: 20131212
  3. MORPHINE [Suspect]
     Dosage: 3 MG, SINGLE
     Route: 058
     Dates: start: 20131211, end: 20131211
  4. KARDEGIC [Concomitant]
  5. CORDARONE [Concomitant]
  6. BISOCOR [Concomitant]
  7. INEXIUM                            /01479302/ [Concomitant]
  8. CALCIPARIN [Concomitant]
  9. KAYEXALATE [Concomitant]

REACTIONS (4)
  - Renal failure [Unknown]
  - Apnoea [Recovered/Resolved]
  - Somnolence [Recovered/Resolved]
  - Respiratory distress [Recovered/Resolved]
